FAERS Safety Report 9239778 (Version 5)
Quarter: 2013Q3

REPORT INFORMATION
  Report Type: Report from Study
  Country: JP (occurrence: JP)
  Receive Date: 20130418
  Receipt Date: 20130924
  Transmission Date: 20140515
  Serious: Yes (Other)
  Sender: FDA-Public Use
  Company Number: JP-JNJFOC-20130407734

PATIENT
  Age: 39 Year
  Sex: Female
  Weight: 46 kg

DRUGS (7)
  1. SIMPONI [Suspect]
     Indication: RHEUMATOID ARTHRITIS
     Route: 058
     Dates: start: 20130427, end: 20130427
  2. SIMPONI [Suspect]
     Indication: RHEUMATOID ARTHRITIS
     Route: 058
     Dates: start: 20130223, end: 20130223
  3. METHOTREXATE [Concomitant]
     Indication: RHEUMATOID ARTHRITIS
     Dates: start: 20121027
  4. METHOTREXATE [Concomitant]
     Indication: RHEUMATOID ARTHRITIS
     Dates: start: 20130420, end: 20130511
  5. METHOTREXATE [Concomitant]
     Indication: RHEUMATOID ARTHRITIS
     Dates: end: 20130413
  6. SALAZOSULFAPYRIDINE [Concomitant]
     Indication: RHEUMATOID ARTHRITIS
     Dates: end: 201303
  7. CELECOX [Concomitant]
     Indication: RHEUMATOID ARTHRITIS
     Route: 048
     Dates: end: 201303

REACTIONS (2)
  - Blood creatine phosphokinase increased [Recovered/Resolved]
  - Aspartate aminotransferase increased [Recovered/Resolved]
